FAERS Safety Report 5281595-5 (Version None)
Quarter: 2007Q1

REPORT INFORMATION
  Report Type: 
  Country: None (occurrence: None)
  Receive Date: 20070330
  Receipt Date: 20070327
  Transmission Date: 20070707
  Serious: Yes (Death, Hospitalization, Other)
  Sender: FDA-Public Use
  Company Number: US-BRISTOL-MYERS SQUIBB COMPANY-13639273

PATIENT
  Age: 42 Year
  Sex: Male

DRUGS (1)
  1. ENTECAVIR [Suspect]
     Dates: start: 20060901

REACTIONS (5)
  - DEATH [None]
  - ENCEPHALOPATHY [None]
  - HEPATIC FAILURE [None]
  - LIVER FUNCTION TEST ABNORMAL [None]
  - RENAL FAILURE [None]
